FAERS Safety Report 4505266-5 (Version None)
Quarter: 2004Q4

REPORT INFORMATION
  Report Type: 
  Country: None (occurrence: None)
  Receive Date: 20041117
  Receipt Date: 20041117
  Transmission Date: 20050328
  Serious: Yes (Hospitalization)
  Sender: FDA-Public Use
  Company Number: None

PATIENT
  Age: 75 Year
  Sex: Female
  Weight: 105.6881 kg

DRUGS (1)
  1. ALLOPURINOL TAB [Suspect]
     Indication: GOUT
     Dosage: 300 MG 1 QD  PO
     Route: 048
     Dates: start: 20031201

REACTIONS (1)
  - CARDIAC FAILURE CONGESTIVE [None]
